FAERS Safety Report 4761150-3 (Version None)
Quarter: 2005Q3

REPORT INFORMATION
  Report Type: 
  Country: None (occurrence: None)
  Receive Date: 20050901
  Receipt Date: 20050819
  Transmission Date: 20060218
  Serious: Yes (Death, Hospitalization)
  Sender: FDA-Public Use
  Company Number: 2005S1004570

PATIENT
  Age: 67 Year
  Sex: Female

DRUGS (17)
  1. CLOZAPINE [Suspect]
     Indication: SCHIZOPHRENIA
     Dosage: 75 MG HS PO
     Route: 048
     Dates: start: 20050114, end: 20050525
  2. CLOZAPINE [Suspect]
     Indication: SCHIZOPHRENIA
     Dosage: 100 MG HS PO
     Route: 048
     Dates: start: 20020114, end: 20050525
  3. RANITIDINE [Concomitant]
  4. FUROSEMIDE [Concomitant]
  5. VALPROIC ACID [Concomitant]
  6. SPIRONOLACTONE [Concomitant]
  7. ASPIRIN [Concomitant]
  8. FERROUS SULFATE [Concomitant]
  9. FERROUS SULFATE/VITAMINS NOS [Concomitant]
  10. POTASSIUM CHLORIDE [Concomitant]
  11. DOCUSATE SODIUM [Concomitant]
  12. INSULIN HUMAN/INSULIN HUMAN INJECTION, ISOPHANE [Concomitant]
  13. PIOGLITAZONE HCL [Concomitant]
  14. CARVEDILOL [Concomitant]
  15. INSULIN GLARGINE [Concomitant]
  16. MAGNESIUM HYDROXIDE TAB [Concomitant]
  17. HYDROXYZINE HYDROCHLORIDE [Concomitant]

REACTIONS (2)
  - HYPOGLYCAEMIA [None]
  - SEPSIS [None]
